FAERS Safety Report 11857180 (Version 2)
Quarter: 2016Q1

REPORT INFORMATION
  Report Type: Spontaneous
  Country: US (occurrence: US)
  Receive Date: 20151221
  Receipt Date: 20160205
  Transmission Date: 20160526
  Serious: No
  Sender: FDA-Public Use
  Company Number: US-BAYER-2015-487982

PATIENT
  Age: 2 Year
  Sex: Male
  Weight: 14.97 kg

DRUGS (1)
  1. MIRALAX [Suspect]
     Active Substance: POLYETHYLENE GLYCOL 3350
     Indication: CONSTIPATION
     Dosage: , QD (3 1/2 TEASPOONS SHE USUALLY MIXES IT IN 4 OUNCES OF MILK OR JUICE)
     Route: 048
     Dates: start: 201506

REACTIONS (6)
  - Off label use [None]
  - Product use issue [None]
  - Product preparation error [None]
  - Wrong technique in product usage process [None]
  - Product odour abnormal [None]
  - Product solubility abnormal [None]
